FAERS Safety Report 23486046 (Version 1)
Quarter: 2024Q1

REPORT INFORMATION
  Report Type: Spontaneous
  Country: DE (occurrence: DE)
  Receive Date: 20240206
  Receipt Date: 20240206
  Transmission Date: 20240410
  Serious: Yes (Other)
  Sender: FDA-Public Use
  Company Number: DE-ITM MEDICAL ISOTOPES GMBH-ITMDE2024000085

PATIENT
  Age: 70 Year
  Sex: Male

DRUGS (4)
  1. LUTETIUM CHLORIDE LU-177 [Suspect]
     Active Substance: LUTETIUM CHLORIDE LU-177
     Indication: Radioisotope therapy
     Dosage: 1232 MBQ, MEGABECQUEREL, CYCLE 1
     Route: 050
  2. LUTETIUM CHLORIDE LU-177 [Suspect]
     Active Substance: LUTETIUM CHLORIDE LU-177
     Dosage: 1161 MBQ, MEGABECQUEREL, CYCLE 2
     Route: 050
  3. LUTETIUM LU-177 VIPIVOTIDE TETRAXETAN [Suspect]
     Active Substance: LUTETIUM LU-177 VIPIVOTIDE TETRAXETAN
     Indication: Hormone-refractory prostate cancer
     Dosage: 1232 MBQ, MEGABECQUEREL, CYCLE 1
     Route: 065
  4. LUTETIUM LU-177 VIPIVOTIDE TETRAXETAN [Suspect]
     Active Substance: LUTETIUM LU-177 VIPIVOTIDE TETRAXETAN
     Dosage: 1161 MBQ, MEGABECQUEREL, CYCLE 2
     Route: 065

REACTIONS (1)
  - Peritonitis [Unknown]
